FAERS Safety Report 9276144 (Version 1)
Quarter: 2012Q4

REPORT INFORMATION
  Report Type: Spontaneous
  Country: SZ (occurrence: None)
  Receive Date: 20121109
  Receipt Date: 20121109
  Transmission Date: 20130627
  Serious: Yes (Death)
  Sender: FDA-Public Use
  Company Number: 2012S1000643

PATIENT
  Age: 61 Year
  Sex: Male

DRUGS (2)
  1. CUBICIN [Suspect]
     Indication: HEPATIC FAILURE
  2. MEROPENEM [Concomitant]

REACTIONS (2)
  - Multi-organ failure [None]
  - Infection [None]
